FAERS Safety Report 9864999 (Version 1)
Quarter: 2014Q1

REPORT INFORMATION
  Report Type: Spontaneous
  Country: US (occurrence: US)
  Receive Date: 20140203
  Receipt Date: 20140203
  Transmission Date: 20141002
  Serious: No
  Sender: FDA-Public Use
  Company Number: US-AMGEN-USASP2014005250

PATIENT
  Age: 4 Year
  Sex: Male

DRUGS (1)
  1. ENBREL [Suspect]
     Indication: JUVENILE IDIOPATHIC ARTHRITIS
     Dosage: HALF OF THE CONTENTS OF AN ENBREL 25MG SYRINGE FOR EACH DOSE, DISCARDING THE REMAINDER
     Route: 065
     Dates: end: 20131225

REACTIONS (2)
  - Urticaria [Unknown]
  - Rash [Unknown]
